FAERS Safety Report 7704496-9 (Version None)
Quarter: 2011Q3

REPORT INFORMATION
  Report Type: 
  Country: None (occurrence: None)
  Receive Date: 20110823
  Receipt Date: 20110816
  Transmission Date: 20111222
  Serious: Yes (Other)
  Sender: FDA-Public Use
  Company Number: US-ELI_LILLY_AND_COMPANY-US201106000963

PATIENT
  Age: 78 Year
  Sex: Female

DRUGS (7)
  1. AMLODIPINE [Concomitant]
     Indication: HYPERTENSION
     Dosage: 10 MG, QD
  2. CLONIDINE [Concomitant]
     Indication: HYPERTENSION
     Dosage: 0.1 MG, BID
  3. ACTOPLUS MET [Concomitant]
     Dosage: UNK, QD
  4. LEXAPRO [Concomitant]
     Indication: DEPRESSION
     Dosage: 10 MG, QD
  5. BYETTA [Suspect]
     Dosage: 10 UG, BID
     Route: 058
     Dates: start: 20070302, end: 20110501
  6. SIMVASTATIN [Concomitant]
     Indication: BLOOD CHOLESTEROL
     Dosage: 20 MG, QD
  7. BYETTA [Suspect]
     Indication: TYPE 2 DIABETES MELLITUS
     Dosage: 5 UG, BID
     Route: 058

REACTIONS (3)
  - WEIGHT DECREASED [None]
  - PANCREATITIS [None]
  - DECREASED APPETITE [None]
